FAERS Safety Report 20156217 (Version 11)
Quarter: 2022Q2

REPORT INFORMATION
  Report Type: Report from Study
  Country: FI (occurrence: None)
  Receive Date: 20211207
  Receipt Date: 20220523
  Transmission Date: 20220720
  Serious: Yes (Hospitalization)
  Sender: FDA-Public Use
  Company Number: FI-Eisai Medical Research-EC-2021-104388

PATIENT
  Age: 66 Year
  Sex: Male
  Weight: 96.2 kg

DRUGS (17)
  1. LENVATINIB [Suspect]
     Active Substance: LENVATINIB
     Indication: Clear cell renal cell carcinoma
     Route: 048
     Dates: start: 20211117, end: 20211129
  2. LENVATINIB [Suspect]
     Active Substance: LENVATINIB
     Route: 048
     Dates: start: 20211210
  3. QUAVONLIMAB [Suspect]
     Active Substance: QUAVONLIMAB
     Indication: Clear cell renal cell carcinoma
     Dosage: MK-1308 25 MG + PEMBROLIZUMAB MK-3475 400 MG
     Route: 041
     Dates: start: 20211117, end: 20211117
  4. PEMBROLIZUMAB [Suspect]
     Active Substance: PEMBROLIZUMAB
     Dosage: MK-1308 25 MG + PEMBROLIZUMAB MK-3475 400 MG
     Route: 041
     Dates: start: 20211229
  5. VAXIGRIPTETRA [Suspect]
     Active Substance: INFLUENZA VIRUS VACCINE QUADRIVALENT TYPE A+B
     Indication: Antiviral prophylaxis
     Route: 030
     Dates: start: 20211119, end: 20211119
  6. COMIRNATY [Suspect]
     Active Substance: TOZINAMERAN
     Indication: COVID-19 prophylaxis
     Route: 030
     Dates: start: 20211119, end: 20211119
  7. SIBICORT [Concomitant]
     Dates: start: 200101
  8. CETIRIZINE HYDROCHLORIDE [Concomitant]
     Active Substance: CETIRIZINE HYDROCHLORIDE
  9. LOSATRIX COMP [Concomitant]
     Dates: start: 200901, end: 20211128
  10. PANTOPRAZOLE SODIUM [Concomitant]
     Active Substance: PANTOPRAZOLE SODIUM
     Dates: start: 201701
  11. BISOPROLOL [Concomitant]
     Active Substance: BISOPROLOL
     Dates: start: 202004, end: 20211118
  12. BISOPROLOL [Concomitant]
     Active Substance: BISOPROLOL
     Dates: start: 20211119, end: 20211221
  13. MOXONIDINE [Concomitant]
     Active Substance: MOXONIDINE
     Dates: start: 202004, end: 20220203
  14. OZEMPIC [Concomitant]
     Active Substance: SEMAGLUTIDE
     Dates: start: 202011
  15. METFORMIN HYDROCHLORIDE [Concomitant]
     Active Substance: METFORMIN HYDROCHLORIDE
     Dates: start: 202011
  16. TAMSULOSIN [Concomitant]
     Active Substance: TAMSULOSIN
     Dates: start: 202101
  17. MIRABEGRON [Concomitant]
     Active Substance: MIRABEGRON
     Dates: start: 202101

REACTIONS (1)
  - Pyrexia [Recovered/Resolved]

NARRATIVE: CASE EVENT DATE: 20211126
